FAERS Safety Report 19121759 (Version 1)
Quarter: 2021Q2

REPORT INFORMATION
  Report Type: Spontaneous
  Country: US (occurrence: US)
  Receive Date: 20210412
  Receipt Date: 20210412
  Transmission Date: 20210717
  Serious: No
  Sender: FDA-Public Use
  Company Number: None

PATIENT
  Age: 74 Year
  Sex: Female
  Weight: 58.5 kg

DRUGS (7)
  1. VAGINAL ESTRADIOL [Concomitant]
  2. MAGNESIUM [Concomitant]
     Active Substance: MAGNESIUM
  3. ELIQUIS [Suspect]
     Active Substance: APIXABAN
     Indication: ATRIAL FIBRILLATION
     Route: 048
     Dates: start: 20210305
  4. TIMED?RELEASE VITAMIN C [Concomitant]
  5. MULTI VITAMIN [Concomitant]
     Active Substance: VITAMINS
  6. PSYLLIUM [Concomitant]
     Active Substance: PLANTAGO SEED
  7. VIACTIV [Concomitant]

REACTIONS (4)
  - Rash [None]
  - Arthralgia [None]
  - Diarrhoea [None]
  - Cardiac flutter [None]

NARRATIVE: CASE EVENT DATE: 20210405
